FAERS Safety Report 16346543 (Version 1)
Quarter: 2019Q2

REPORT INFORMATION
  Report Type: Spontaneous
  Country: HR (occurrence: HR)
  Receive Date: 20190523
  Receipt Date: 20190523
  Transmission Date: 20190711
  Serious: Yes (Death, Life-Threatening, Hospitalization, Other)
  Sender: FDA-Public Use
  Company Number: HR-009507513-1905HRV008252

PATIENT
  Sex: Female

DRUGS (1)
  1. KEYTRUDA [Suspect]
     Active Substance: PEMBROLIZUMAB
     Indication: NON-SMALL CELL LUNG CANCER
     Dosage: UNK
     Dates: start: 201904, end: 201904

REACTIONS (4)
  - Asthenia [Unknown]
  - Malignant neoplasm progression [Fatal]
  - Dyspnoea [Fatal]
  - Rash [Unknown]

NARRATIVE: CASE EVENT DATE: 201904
